FAERS Safety Report 4376776-9 (Version None)
Quarter: 2004Q2

REPORT INFORMATION
  Report Type: 
  Country: None (occurrence: None)
  Receive Date: 20040609
  Receipt Date: 20040220
  Transmission Date: 20050107
  Serious: Yes (Other)
  Sender: FDA-Public Use
  Company Number: 2004194476US

PATIENT
  Age: 78 Year
  Sex: Female

DRUGS (6)
  1. BEXTRA [Suspect]
     Indication: OSTEOPOROSIS
     Dosage: 10 MG
     Dates: start: 20040114
  2. NUPRIN(IBUPROFEN, IBUPROFEN) [Concomitant]
     Dates: start: 20040109
  3. PAXIL [Concomitant]
  4. EYE DROPS [Concomitant]
  5. FUROSEMIDE [Concomitant]
  6. ASPIRIN [Concomitant]

REACTIONS (3)
  - DYSPNOEA [None]
  - ULCER HAEMORRHAGE [None]
  - WHEEZING [None]
